FAERS Safety Report 25736905 (Version 1)
Quarter: 2025Q3

REPORT INFORMATION
  Report Type: Spontaneous
  Country: EU (occurrence: EU)
  Receive Date: 20250828
  Receipt Date: 20250828
  Transmission Date: 20251021
  Serious: Yes (Other)
  Sender: ALNYLAM PHARMACEUTICALS
  Company Number: EU-ALNYLAM PHARMACEUTICALS, INC.-ALN-2025-005139

PATIENT

DRUGS (7)
  1. OXLUMO [Suspect]
     Active Substance: LUMASIRAN
     Indication: Primary hyperoxaluria
     Dosage: 6 MILLIGRAM/KILOGRAM, MONTHLY
     Route: 065
     Dates: start: 20240922, end: 20240922
  2. ARANESP [Concomitant]
     Active Substance: DARBEPOETIN ALFA
     Indication: Primary hyperoxaluria
     Dosage: 40 MICROGRAM, WEEKLY
     Route: 065
  3. ZEMPLAR [Concomitant]
     Active Substance: PARICALCITOL
     Indication: Primary hyperoxaluria
     Dosage: 2 MICROGRAM, SINGLE (DOSE)
     Route: 065
  4. CALCIUM [Concomitant]
     Active Substance: CALCIUM
     Indication: Primary hyperoxaluria
     Route: 065
  5. VITAMIN B6 [Concomitant]
     Active Substance: PYRIDOXINE HYDROCHLORIDE
     Indication: Primary hyperoxaluria
     Route: 065
  6. VITAMIN B12 [Concomitant]
     Active Substance: CYANOCOBALAMIN
     Indication: Primary hyperoxaluria
     Route: 065
  7. FOLIC ACID [Concomitant]
     Active Substance: FOLIC ACID
     Indication: Primary hyperoxaluria
     Route: 065

REACTIONS (2)
  - Urine oxalate increased [Unknown]
  - Disease progression [Unknown]

NARRATIVE: CASE EVENT DATE: 20250319
